FAERS Safety Report 19950210 (Version 2)
Quarter: 2021Q4

REPORT INFORMATION
  Report Type: Report from Study
  Country: NL (occurrence: NL)
  Receive Date: 20211013
  Receipt Date: 20211025
  Transmission Date: 20220303
  Serious: Yes (Hospitalization)
  Sender: FDA-Public Use
  Company Number: NL-PFIZER INC-2021629558

PATIENT
  Age: 42 Year
  Sex: Female
  Weight: 93 kg

DRUGS (5)
  1. PACLITAXEL [Suspect]
     Active Substance: PACLITAXEL
     Indication: Product used for unknown indication
     Dosage: 167 MILLIGRAM, Q3W (167 MG, EVERY 3 WEEKS, D1, D8)
     Dates: start: 20200709, end: 20201028
  2. TRASTUZUMAB [Suspect]
     Active Substance: TRASTUZUMAB
     Indication: Product used for unknown indication
     Dosage: UNK UNK, Q3W (8 MG, AFTER 1 DOSE TO 6 MG, EVERY 3 WEEKS)
     Dates: start: 20200709
  3. CARBOPLATIN [Suspect]
     Active Substance: CARBOPLATIN
     Indication: Product used for unknown indication
     Dosage: UNK
  4. CARBOPLATIN [Suspect]
     Active Substance: CARBOPLATIN
     Dosage: UNK, Q3W (6 AUC, EVERY 3 WEEKS)
     Dates: start: 20200709, end: 20200820
  5. PERTUZUMAB [Suspect]
     Active Substance: PERTUZUMAB
     Indication: Product used for unknown indication
     Dosage: UNK UNK, Q3W (840 MG, AFTER 1 DOSE TO 420 MG, EVERY 3 WEEKS)
     Dates: start: 20200709, end: 20201029

REACTIONS (2)
  - Renal failure [Recovered/Resolved]
  - Dehydration [Recovered/Resolved]

NARRATIVE: CASE EVENT DATE: 20200812
